FAERS Safety Report 21766205 (Version 1)
Quarter: 2022Q4

REPORT INFORMATION
  Report Type: Spontaneous
  Country: US (occurrence: None)
  Receive Date: 20221221
  Receipt Date: 20221221
  Transmission Date: 20230113
  Serious: Yes (Other)
  Sender: FDA-Public Use
  Company Number: None

PATIENT
  Age: 22 Year
  Sex: Female
  Weight: 67.5 kg

DRUGS (7)
  1. METHYLPHENIDATE HYDROCHLORIDE [Suspect]
     Active Substance: METHYLPHENIDATE HYDROCHLORIDE
     Indication: Attention deficit hyperactivity disorder
     Dosage: OTHER QUANTITY : 1 TABLET(S);?
     Route: 048
     Dates: start: 20200822, end: 20200826
  2. SERTRALINE [Concomitant]
     Active Substance: SERTRALINE HYDROCHLORIDE
  3. Hailey [Concomitant]
  4. KETOCONAZOLE [Concomitant]
     Active Substance: KETOCONAZOLE
  5. TRETINOIN [Concomitant]
     Active Substance: TRETINOIN
  6. RenewLife Extra Care Probiotic [Concomitant]
  7. Citrucel Fiber supplement [Concomitant]

REACTIONS (3)
  - Blepharospasm [None]
  - Drug ineffective [None]
  - Product substitution issue [None]

NARRATIVE: CASE EVENT DATE: 20200823
